FAERS Safety Report 25438380 (Version 1)
Quarter: 2025Q2

REPORT INFORMATION
  Report Type: Spontaneous
  Country: CN (occurrence: CN)
  Receive Date: 20250616
  Receipt Date: 20250616
  Transmission Date: 20250716
  Serious: Yes (Other)
  Sender: ORGANON
  Company Number: CN-ORGANON-O2506CHN001118

PATIENT
  Age: 67 Year
  Sex: Male
  Weight: 77 kg

DRUGS (2)
  1. DIPROSPAN [Suspect]
     Active Substance: BETAMETHASONE DIPROPIONATE\BETAMETHASONE SODIUM PHOSPHATE
     Indication: Hernia pain
     Dosage: 1ML, QD, INTRAMUSCULAR INJECTION
     Route: 030
     Dates: start: 20250522, end: 20250522
  2. DIPROSPAN [Suspect]
     Active Substance: BETAMETHASONE DIPROPIONATE\BETAMETHASONE SODIUM PHOSPHATE
     Dosage: 1ML, QD, INTRAMUSCULAR INJECTION
     Route: 030
     Dates: start: 20250522, end: 20250522

REACTIONS (4)
  - Insomnia [Recovering/Resolving]
  - Agitation [Recovering/Resolving]
  - Product use in unapproved indication [Unknown]
  - Product prescribing issue [Unknown]

NARRATIVE: CASE EVENT DATE: 20250522
